FAERS Safety Report 5186490-8 (Version None)
Quarter: 2006Q4

REPORT INFORMATION
  Report Type: 
  Country: None (occurrence: None)
  Receive Date: 20061213
  Receipt Date: 20061130
  Transmission Date: 20070319
  Serious: Yes (Other)
  Sender: FDA-Public Use
  Company Number: 15250

PATIENT
  Age: 69 Year

DRUGS (1)
  1. METHOTREXATE [Suspect]

REACTIONS (4)
  - CUTANEOUS TUBERCULOSIS [None]
  - DISEASE RECURRENCE [None]
  - TUBERCULOSIS [None]
  - VASCULAR PSEUDOANEURYSM [None]
